FAERS Safety Report 11175476 (Version 1)
Quarter: 2015Q2

REPORT INFORMATION
  Report Type: Spontaneous
  Country: US (occurrence: None)
  Receive Date: 20150608
  Receipt Date: 20150608
  Transmission Date: 20150821
  Serious: Yes (Disabling, Other)
  Sender: FDA-Public Use
  Company Number: None

PATIENT
  Age: 44 Year
  Sex: Female
  Weight: 91.63 kg

DRUGS (7)
  1. OXYCODONE [Concomitant]
     Active Substance: OXYCODONE
  2. ATIVAN [Concomitant]
     Active Substance: LORAZEPAM
  3. FENTANYL. [Concomitant]
     Active Substance: FENTANYL
  4. LATINA [Concomitant]
  5. CLONADINE [Concomitant]
  6. MIRENA [Suspect]
     Active Substance: LEVONORGESTREL
  7. TOPAMAX [Concomitant]
     Active Substance: TOPIRAMATE

REACTIONS (1)
  - Neoplasm malignant [None]

NARRATIVE: CASE EVENT DATE: 20150312
